FAERS Safety Report 24538360 (Version 6)
Quarter: 2024Q4

REPORT INFORMATION
  Report Type: Report from Study
  Country: US (occurrence: US)
  Receive Date: 20241023
  Receipt Date: 20241207
  Transmission Date: 20250115
  Serious: Yes (Hospitalization)
  Sender: JAZZ
  Company Number: US-JAZZ PHARMACEUTICALS-2024-US-018435

PATIENT
  Age: 17 Year
  Sex: Female

DRUGS (6)
  1. EPIDIOLEX [Suspect]
     Active Substance: CANNABIDIOL
     Indication: Seizure
     Dosage: 3.5 MILLIGRAM/KILOGRAM/DAY, BID
     Route: 048
     Dates: start: 20241019
  2. EPIDIOLEX [Suspect]
     Active Substance: CANNABIDIOL
     Indication: Epilepsy
     Dosage: 4 MILLILITER, BID
     Route: 048
  3. EPIDIOLEX [Suspect]
     Active Substance: CANNABIDIOL
     Dosage: 10.6 MILLIGRAM/KILOGRAM/DAY, BID
     Route: 048
     Dates: start: 20241019
  4. EPIDIOLEX [Suspect]
     Active Substance: CANNABIDIOL
     Dosage: TAKE 2 MILLILITER BY MOUTH TWICE DAILY FOR WEEK 1, THEN 4 MILLILITER TWICE DAILY FOR WEEK 2, THEN 6
     Route: 048
     Dates: start: 20241102
  5. ETHOSUXIMIDE [Concomitant]
     Active Substance: ETHOSUXIMIDE
     Indication: Seizure
     Dosage: UNK
  6. ONFI [Concomitant]
     Active Substance: CLOBAZAM
     Dosage: UNK

REACTIONS (7)
  - Brain operation [Unknown]
  - Seizure [Unknown]
  - Dizziness [Not Recovered/Not Resolved]
  - Nausea [Not Recovered/Not Resolved]
  - Dehydration [Not Recovered/Not Resolved]
  - Vomiting [Unknown]
  - Fall [Not Recovered/Not Resolved]

NARRATIVE: CASE EVENT DATE: 20241024
